FAERS Safety Report 8348094-5 (Version None)
Quarter: 2012Q2

REPORT INFORMATION
  Report Type: 
  Country: None (occurrence: None)
  Receive Date: 20120509
  Receipt Date: 20100625
  Transmission Date: 20120825
  Serious: No
  Sender: FDA-Public Use
  Company Number: US-TEVA-2010003502

PATIENT
  Sex: Female
  Weight: 47.67 kg

DRUGS (4)
  1. ALBUTEROL [Concomitant]
     Indication: ASTHMA
  2. SINGULAIR [Concomitant]
     Indication: ASTHMA
     Dates: start: 20090101
  3. MIRCETTE [Concomitant]
     Dates: start: 20080101
  4. NUVIGIL [Suspect]
     Indication: NARCOLEPSY
     Dosage: 150 MILLIGRAM;
     Route: 048
     Dates: start: 20100623

REACTIONS (2)
  - NERVOUSNESS [None]
  - ANXIETY [None]
